FAERS Safety Report 5496225-7 (Version None)
Quarter: 2007Q4

REPORT INFORMATION
  Report Type: 
  Country: None (occurrence: None)
  Receive Date: 20071025
  Receipt Date: 20070313
  Transmission Date: 20080405
  Serious: No
  Sender: FDA-Public Use
  Company Number: A0643086A

PATIENT
  Sex: Male

DRUGS (4)
  1. ADVAIR DISKUS 100/50 [Suspect]
     Indication: ASTHMA
     Route: 055
     Dates: start: 19920101
  2. NASACORT [Concomitant]
  3. EFFEXOR [Concomitant]
  4. ETODOLAC [Concomitant]

REACTIONS (1)
  - OSTEOPOROSIS [None]
